FAERS Safety Report 24387034 (Version 1)
Quarter: 2024Q4

REPORT INFORMATION
  Report Type: Spontaneous
  Country: IT (occurrence: IT)
  Receive Date: 20241002
  Receipt Date: 20241002
  Transmission Date: 20250114
  Serious: Yes (Hospitalization, Other)
  Sender: HIKMA
  Company Number: IT-HIKMA PHARMACEUTICALS USA INC.-IT-H14001-24-08830

PATIENT
  Age: 71 Year
  Sex: Male

DRUGS (4)
  1. CLARITHROMYCIN [Suspect]
     Active Substance: CLARITHROMYCIN
     Indication: Respiratory tract infection
     Dosage: UNK
     Route: 065
     Dates: start: 20240522
  2. FIDATO [Suspect]
     Active Substance: CEFTRIAXONE SODIUM
     Indication: Respiratory tract infection
     Dosage: UNK
     Route: 065
     Dates: start: 20240517
  3. AVODART [Concomitant]
     Active Substance: DUTASTERIDE
     Indication: Product used for unknown indication
     Dosage: UNK
     Route: 065
  4. TERAZOSIN [Concomitant]
     Active Substance: TERAZOSIN HYDROCHLORIDE
     Indication: Product used for unknown indication
     Dosage: UNK
     Route: 065

REACTIONS (1)
  - Pancreatitis [Unknown]

NARRATIVE: CASE EVENT DATE: 20240525
